FAERS Safety Report 9907386 (Version 1)
Quarter: 2014Q1

REPORT INFORMATION
  Report Type: Spontaneous
  Country: FR (occurrence: FR)
  Receive Date: 20140218
  Receipt Date: 20140218
  Transmission Date: 20141002
  Serious: Yes (Other)
  Sender: FDA-Public Use
  Company Number: FR-GILEAD-2014-0094683

PATIENT
  Age: 49 Year
  Sex: Male

DRUGS (8)
  1. TRUVADA [Suspect]
     Indication: HIV INFECTION
     Dosage: UNK
     Route: 048
     Dates: start: 20080220
  2. APTIVUS [Suspect]
     Indication: HIV INFECTION
     Dosage: UNK
     Route: 048
     Dates: start: 20080220
  3. NORVIR [Suspect]
     Indication: HIV INFECTION
     Dosage: UNK
     Route: 048
     Dates: start: 20051005
  4. FUZEON [Suspect]
     Indication: HIV INFECTION
     Dosage: UNK
     Route: 048
     Dates: start: 20080220, end: 20090324
  5. LEVOCARNIL [Suspect]
     Indication: PRODUCT USED FOR UNKNOWN INDICATION
     Route: 048
  6. BACTRIM [Suspect]
     Indication: PROPHYLAXIS
     Route: 048
  7. LOPERAMIDE [Suspect]
     Indication: DIARRHOEA
     Route: 048
  8. INEGY [Suspect]
     Indication: HYPERCHOLESTEROLAEMIA
     Dosage: UNK
     Route: 048
     Dates: end: 200812

REACTIONS (1)
  - Colour blindness acquired [Unknown]
